FAERS Safety Report 9118146 (Version 2)
Quarter: 2013Q1

REPORT INFORMATION
  Report Type: Spontaneous
  Country: JP (occurrence: JP)
  Receive Date: 20130226
  Receipt Date: 20130326
  Transmission Date: 20140127
  Serious: Yes (Hospitalization)
  Sender: FDA-Public Use
  Company Number: JP-AMGEN-JPNSP2013012612

PATIENT
  Age: 76 Year
  Sex: Male
  Weight: 63 kg

DRUGS (5)
  1. VECTIBIX [Suspect]
     Indication: COLON CANCER
     Dosage: 300 MG, Q2WK
     Route: 041
     Dates: start: 20130123, end: 20130206
  2. TOPOTECIN [Suspect]
     Dosage: 200 MG, Q2WK
     Route: 041
     Dates: start: 20130108, end: 20130206
  3. FLUOROURACIL [Suspect]
     Dosage: 550 MG, Q2WK
     Route: 041
     Dates: start: 20130108, end: 20130206
  4. FLUOROURACIL [Suspect]
     Dosage: 3250 MG, Q2WK
     Route: 041
     Dates: start: 20130108, end: 20130206
  5. CALCIUM LEVOFOLINATE [Concomitant]
     Dosage: UNK
     Route: 041
     Dates: start: 20130108

REACTIONS (1)
  - Gastrointestinal perforation [Recovering/Resolving]
